FAERS Safety Report 8238445 (Version 9)
Quarter: 2014Q1

REPORT INFORMATION
  Report Type: Spontaneous
  Country: US (occurrence: US)
  Receive Date: 20111109
  Receipt Date: 20140108
  Transmission Date: 20141002
  Serious: Yes (Other)
  Sender: FDA-Public Use
  Company Number: US-ASTRAZENECA-2011SE65903

PATIENT
  Age: 60 Year
  Sex: Female
  Weight: 87.5 kg

DRUGS (34)
  1. NEXIUM [Suspect]
     Indication: GASTROOESOPHAGEAL REFLUX DISEASE
     Route: 048
  2. NEXIUM [Suspect]
     Indication: GASTRIC ULCER
     Route: 048
  3. NEXIUM [Suspect]
     Indication: GASTROOESOPHAGEAL REFLUX DISEASE
     Dosage: TWICE DAILY
     Route: 048
  4. NEXIUM [Suspect]
     Indication: GASTRIC ULCER
     Dosage: TWICE DAILY
     Route: 048
  5. NEXIUM [Suspect]
     Indication: GASTROOESOPHAGEAL REFLUX DISEASE
     Route: 048
  6. NEXIUM [Suspect]
     Indication: GASTRIC ULCER
     Route: 048
  7. NEXIUM [Suspect]
     Indication: GASTROOESOPHAGEAL REFLUX DISEASE
     Route: 048
  8. NEXIUM [Suspect]
     Indication: GASTRIC ULCER
     Route: 048
  9. NEXIUM [Suspect]
     Indication: GASTROOESOPHAGEAL REFLUX DISEASE
     Route: 048
  10. NEXIUM [Suspect]
     Indication: GASTRIC ULCER
     Route: 048
  11. NEXIUM [Suspect]
     Indication: GASTROOESOPHAGEAL REFLUX DISEASE
     Route: 048
     Dates: start: 2007
  12. NEXIUM [Suspect]
     Indication: GASTRIC ULCER
     Route: 048
     Dates: start: 2007
  13. NEXIUM [Suspect]
     Indication: GASTROOESOPHAGEAL REFLUX DISEASE
     Route: 048
  14. NEXIUM [Suspect]
     Indication: GASTRIC ULCER
     Route: 048
  15. NEXIUM [Suspect]
     Indication: GASTROOESOPHAGEAL REFLUX DISEASE
     Route: 048
  16. NEXIUM [Suspect]
     Indication: GASTRIC ULCER
     Route: 048
  17. PRILOSEC OTC [Suspect]
     Route: 048
  18. ZANTAC [Concomitant]
  19. XANAX [Concomitant]
     Dosage: 3 TO 4 A DAY
  20. CLONIDINE [Concomitant]
     Indication: BLOOD PRESSURE ABNORMAL
     Route: 048
     Dates: start: 2011
  21. LOPRESSOR [Concomitant]
     Indication: BLOOD PRESSURE ABNORMAL
     Route: 048
     Dates: start: 2011
  22. COUMADIN [Concomitant]
     Indication: PULMONARY EMBOLISM
     Dosage: 4MG MWFSA 6MG STUTH DAILY
     Route: 048
     Dates: start: 2006
  23. PRAVASTATIN [Concomitant]
     Indication: BLOOD CHOLESTEROL ABNORMAL
     Route: 048
     Dates: start: 2010
  24. NORVASC [Concomitant]
     Indication: BLOOD PRESSURE ABNORMAL
     Route: 048
     Dates: start: 2011
  25. LASIX [Concomitant]
     Indication: OEDEMA
     Route: 048
     Dates: start: 2008
  26. FLEXARIL [Concomitant]
     Indication: MUSCLE SPASMS
     Route: 048
     Dates: start: 201301
  27. POTASSIUM [Concomitant]
     Indication: MINERAL SUPPLEMENTATION
     Route: 048
     Dates: start: 2008
  28. ACYCLOVIR [Concomitant]
     Indication: IMMUNE SYSTEM DISORDER
     Route: 048
     Dates: start: 201310
  29. PHENTERMINE HYDROCHLORIDE [Concomitant]
     Indication: NUTRITIONAL SUPPLEMENTATION
     Route: 048
     Dates: start: 201309
  30. FIORICET [Concomitant]
     Indication: MIGRAINE
     Dosage: DAILY
     Route: 048
  31. HEALTHY WOMAN [Concomitant]
     Indication: HOT FLUSH
     Dosage: DAILY
     Route: 048
     Dates: start: 2006
  32. ADVAIR [Concomitant]
     Indication: ASTHMA
     Dosage: 500/50 BID
     Route: 055
     Dates: start: 2007
  33. MUCINEX DM [Concomitant]
     Indication: INCREASED BRONCHIAL SECRETION
     Route: 048
     Dates: start: 2008
  34. ALBUTEROL INHALER [Concomitant]
     Indication: ASTHMA
     Dosage: PRN
     Route: 055
     Dates: start: 2008

REACTIONS (27)
  - Gastrointestinal haemorrhage [Unknown]
  - Haemorrhage [Unknown]
  - Immunodeficiency [Unknown]
  - Pulmonary embolism [Unknown]
  - Chest pain [Unknown]
  - Haemoglobin decreased [Unknown]
  - Faeces discoloured [Unknown]
  - Muscle spasms [Unknown]
  - Chest pain [Unknown]
  - Viral infection [Unknown]
  - Sleep disorder due to a general medical condition [Unknown]
  - Gastrooesophageal reflux disease [Unknown]
  - Dyspepsia [Unknown]
  - Dysphonia [Not Recovered/Not Resolved]
  - Gastric disorder [Unknown]
  - Asthma [Not Recovered/Not Resolved]
  - Abdominal pain upper [Not Recovered/Not Resolved]
  - Malaise [Not Recovered/Not Resolved]
  - Diarrhoea [Not Recovered/Not Resolved]
  - Vomiting [Not Recovered/Not Resolved]
  - Headache [Unknown]
  - Abdominal pain upper [Unknown]
  - Abdominal pain [Unknown]
  - Drug dose omission [Unknown]
  - Intentional drug misuse [Unknown]
  - Drug ineffective [Unknown]
  - Off label use [Not Recovered/Not Resolved]
